FAERS Safety Report 6251578-7 (Version None)
Quarter: 2009Q2

REPORT INFORMATION
  Report Type: 
  Country: None (occurrence: None)
  Receive Date: 20090630
  Receipt Date: 20090619
  Transmission Date: 20091009
  Serious: Yes (Hospitalization, Other)
  Sender: FDA-Public Use
  Company Number: US-ELI_LILLY_AND_COMPANY-US200906005005

PATIENT
  Sex: Female
  Weight: 99.32 kg

DRUGS (16)
  1. BYETTA [Suspect]
     Indication: TYPE 2 DIABETES MELLITUS
     Dosage: 10 UG, UNKNOWN
     Route: 058
     Dates: start: 20050101, end: 20060101
  2. BYETTA [Suspect]
     Dosage: 10 UG, 2/D
     Route: 058
     Dates: start: 20060101
  3. ACTOPLUS MET [Concomitant]
     Indication: TYPE 2 DIABETES MELLITUS
     Dosage: UNK, 2/D
     Route: 048
  4. JANUVIA [Concomitant]
     Indication: TYPE 2 DIABETES MELLITUS
     Dosage: 100 MG, DAILY (1/D)
     Route: 048
  5. BUMETANIDE [Concomitant]
     Indication: POLYURIA
     Dosage: 2 MG, DAILY (1/D)
     Route: 048
  6. KLOR-CON [Concomitant]
     Indication: MINERAL SUPPLEMENTATION
     Dosage: 20 MG, DAILY (1/D)
     Route: 048
  7. LOTREL [Concomitant]
     Indication: HYPERTENSION
     Dosage: UNK, DAILY (1/D)
     Route: 048
  8. PLAVIX [Concomitant]
     Indication: CEREBROVASCULAR ACCIDENT PROPHYLAXIS
     Dosage: 75 MG, DAILY (1/D)
     Route: 048
  9. MINOXIDIL [Concomitant]
     Indication: HYPERTENSION
     Dosage: UNK, DAILY (1/D)
     Route: 048
  10. MICARDIS [Concomitant]
     Indication: CARDIAC DISORDER
     Dosage: 80 MG, DAILY (1/D)
     Route: 048
  11. ASPIRIN [Concomitant]
     Indication: CEREBROVASCULAR ACCIDENT PROPHYLAXIS
     Dosage: 325 MG, DAILY (1/D)
     Route: 048
  12. CARVEDILOL [Concomitant]
     Indication: CARDIAC DISORDER
     Dosage: 12.5 MG, DAILY (1/D)
     Route: 048
  13. VITAMIN D [Concomitant]
     Indication: OSTEOPOROSIS
     Dosage: UNK, DAILY (1/D)
     Route: 048
  14. VITAMIN B-12 [Concomitant]
     Dosage: UNK, DAILY (1/D)
     Route: 048
  15. VITAMIN B6 [Concomitant]
     Dosage: UNK, DAILY (1/D)
     Route: 048
  16. FOLIC ACID [Concomitant]
     Dosage: UNK, DAILY (1/D)
     Route: 048

REACTIONS (14)
  - BACK PAIN [None]
  - BLOOD GLUCOSE DECREASED [None]
  - BLOOD GLUCOSE INCREASED [None]
  - BREAST CANCER RECURRENT [None]
  - CHEST PAIN [None]
  - CORONARY ARTERY BYPASS [None]
  - DRUG ADMINISTRATION ERROR [None]
  - GLYCOSYLATED HAEMOGLOBIN INCREASED [None]
  - INTENTIONAL DRUG MISUSE [None]
  - INTENTIONAL OVERDOSE [None]
  - NERVOUSNESS [None]
  - OSTEOPOROSIS [None]
  - TREMOR [None]
  - WEIGHT DECREASED [None]
